FAERS Safety Report 13297657 (Version 1)
Quarter: 2017Q1

REPORT INFORMATION
  Report Type: Spontaneous
  Country: US (occurrence: US)
  Receive Date: 20170306
  Receipt Date: 20170306
  Transmission Date: 20170428
  Serious: No
  Sender: FDA-Public Use
  Company Number: US-PFIZER INC-2017086048

PATIENT
  Sex: Female

DRUGS (1)
  1. XELJANZ [Suspect]
     Active Substance: TOFACITINIB CITRATE
     Dosage: 5 MG, 2X/DAY

REACTIONS (11)
  - Pain in extremity [Not Recovered/Not Resolved]
  - Bone swelling [Unknown]
  - Condition aggravated [Not Recovered/Not Resolved]
  - Synovitis [Unknown]
  - Joint dislocation [Unknown]
  - Hepatic enzyme increased [Recovering/Resolving]
  - Fatigue [Not Recovered/Not Resolved]
  - Metatarsalgia [Unknown]
  - Contusion [Unknown]
  - Arthralgia [Not Recovered/Not Resolved]
  - Wrist deformity [Unknown]
